FAERS Safety Report 4674629-X (Version None)
Quarter: 2005Q2

REPORT INFORMATION
  Report Type: 
  Country: None (occurrence: None)
  Receive Date: 20050517
  Receipt Date: 20050505
  Transmission Date: 20051028
  Serious: Yes (Hospitalization)
  Sender: FDA-Public Use
  Company Number: THYM-10512

PATIENT

DRUGS (1)
  1. THYMOGLOBULIN [Suspect]

REACTIONS (3)
  - LYMPHOCYTIC INFILTRATION [None]
  - NEPHRITIS INTERSTITIAL [None]
  - RENAL TUBULAR NECROSIS [None]
